FAERS Safety Report 10028817 (Version 1)
Quarter: 2014Q1

REPORT INFORMATION
  Report Type: Spontaneous
  Country: US (occurrence: US)
  Receive Date: 20140321
  Receipt Date: 20140321
  Transmission Date: 20141002
  Serious: Yes (Other)
  Sender: FDA-Public Use
  Company Number: PHEH2014US005547

PATIENT
  Age: 84 Year
  Sex: Female

DRUGS (1)
  1. TEKTURNA [Suspect]
     Dosage: 2 DF (150 MG), PER DAY

REACTIONS (5)
  - Diabetes mellitus [Unknown]
  - Herpes zoster [Unknown]
  - Back pain [Unknown]
  - Fear of death [Unknown]
  - Pain [Unknown]
